FAERS Safety Report 9988736 (Version 1)
Quarter: 2014Q1

REPORT INFORMATION
  Report Type: Other
  Country: DE (occurrence: DE)
  Receive Date: 20140310
  Receipt Date: 20140310
  Transmission Date: 20141002
  Serious: Yes (Congenital Anomaly, Other)
  Sender: FDA-Public Use
  Company Number: DE-LUPIN PHARMACEUTICALS INC.-E2B_00001765

PATIENT
  Age: 1 Day
  Sex: Male
  Weight: 2.08 kg

DRUGS (4)
  1. SERTRALINE [Suspect]
     Indication: DEPRESSION
     Route: 064
     Dates: start: 20120407, end: 20121206
  2. LAMOTRIGIN [Suspect]
     Indication: BIPOLAR DISORDER
     Dosage: 200MG DAILY/ HIGHER DOSE OF 200 MG/DAY SINCE WEEK 15
     Route: 064
     Dates: start: 20120407, end: 20121206
  3. L-THYROXIN HENNING [Concomitant]
     Indication: AUTOIMMUNE THYROIDITIS
     Route: 064
     Dates: start: 20120407, end: 20121206
  4. CORDES BPO 5 [Concomitant]
     Indication: ACNE
     Route: 064
     Dates: start: 20120407, end: 20120518

REACTIONS (2)
  - Polydactyly [Recovered/Resolved]
  - Foetal exposure during pregnancy [Unknown]
